FAERS Safety Report 6695848-7 (Version None)
Quarter: 2010Q2

REPORT INFORMATION
  Report Type: 
  Country: None (occurrence: None)
  Receive Date: 20100426
  Receipt Date: 20100416
  Transmission Date: 20101027
  Serious: Yes (Death, Hospitalization)
  Sender: FDA-Public Use
  Company Number: DE-WYE-G05972610

PATIENT
  Sex: Male
  Weight: 86.5 kg

DRUGS (12)
  1. RELISTOR [Suspect]
     Indication: CONSTIPATION
     Dosage: UNKNOWN
     Route: 058
  2. FORTECORTIN [Concomitant]
  3. PANTOZOL [Concomitant]
  4. IBUPROFEN TABLETS [Concomitant]
  5. ISOSORBIDE DINITRATE [Concomitant]
  6. CARVEDILOL [Concomitant]
  7. LEVOTHYROXINE SODIUM [Concomitant]
  8. ENALAPRIL MALEATE [Concomitant]
  9. NITRENDIPINE [Concomitant]
  10. INNOHEP [Concomitant]
  11. TARCEVA [Suspect]
     Indication: NON-SMALL CELL LUNG CANCER
     Dosage: 100 MG AND 150 MG ALTERNATING, FREQUENCY UNKNOWN
     Route: 048
     Dates: start: 20091001, end: 20100307
  12. BISOPROLOL [Concomitant]

REACTIONS (2)
  - CYANOSIS [None]
  - VASCULAR OCCLUSION [None]
